FAERS Safety Report 8056107-3 (Version None)
Quarter: 2012Q1

REPORT INFORMATION
  Report Type: 
  Country: None (occurrence: None)
  Receive Date: 20120119
  Receipt Date: 20120111
  Transmission Date: 20120608
  Serious: Yes (Other)
  Sender: FDA-Public Use
  Company Number: US-US-EMD SERONO, INC.-7104911

PATIENT
  Sex: Female

DRUGS (9)
  1. REBIF [Suspect]
     Indication: MULTIPLE SCLEROSIS
     Route: 058
     Dates: start: 20031017
  2. VALIUM [Concomitant]
  3. PRINZIDE [Concomitant]
     Dosage: 20MG/12.5MG
  4. PLAVIX [Suspect]
     Indication: PRODUCT USED FOR UNKNOWN INDICATION
  5. ASPIRIN [Suspect]
  6. ALPRAZOLAM [Concomitant]
     Indication: PSYCHOTHERAPY
  7. PROPRANOLOL [Suspect]
     Indication: PRODUCT USED FOR UNKNOWN INDICATION
  8. ATENOLOL [Suspect]
     Indication: PRODUCT USED FOR UNKNOWN INDICATION
  9. BUPROPION HYDROCHLORIDE [Concomitant]
     Indication: PSYCHOTHERAPY

REACTIONS (8)
  - DYSGRAPHIA [None]
  - GAIT DISTURBANCE [None]
  - HEAD INJURY [None]
  - NAUSEA [None]
  - FALL [None]
  - HEADACHE [None]
  - CEREBRAL ISCHAEMIA [None]
  - LACUNAR INFARCTION [None]
